FAERS Safety Report 6836934-8 (Version None)
Quarter: 2010Q3

REPORT INFORMATION
  Report Type: 
  Country: None (occurrence: None)
  Receive Date: 20100713
  Receipt Date: 20100616
  Transmission Date: 20110219
  Serious: Yes (Other)
  Sender: FDA-Public Use
  Company Number: PHBS2008US05920

PATIENT
  Age: 32 Year
  Sex: Female

DRUGS (4)
  1. LETROZOLE [Suspect]
     Indication: OVULATION INDUCTION
     Dosage: 5 MG/DAY ON CYLE DAYS 2 TO 6
  2. METFORMIN [Concomitant]
     Dosage: 750 MG, BID
  3. MEDROXYPROGESTERONE ACETATE [Concomitant]
  4. LUTEINISING HORMONE (HUMAN) [Concomitant]

REACTIONS (3)
  - DRUG EXPOSURE BEFORE PREGNANCY [None]
  - MULTIPLE PREGNANCY [None]
  - SELECTIVE ABORTION [None]
